FAERS Safety Report 6356063-X (Version None)
Quarter: 2009Q3

REPORT INFORMATION
  Report Type: 
  Country: None (occurrence: None)
  Receive Date: 20090914
  Receipt Date: 20090914
  Transmission Date: 20100115
  Serious: Yes (Other)
  Sender: FDA-Public Use
  Company Number: None

PATIENT
  Age: 35 Year
  Sex: Female
  Weight: 63.5036 kg

DRUGS (2)
  1. BOPRUPION HCL 300MG [Suspect]
     Indication: DEPRESSION
     Dosage: 300MG 1 IN MORNING/MOUTH UNK
     Route: 048
     Dates: start: 20090201, end: 20090401
  2. BOPRUPION HCL 300MG [Suspect]
     Indication: GENERALISED ANXIETY DISORDER
     Dosage: 300MG 1 IN MORNING/MOUTH UNK
     Route: 048
     Dates: start: 20090201, end: 20090401

REACTIONS (6)
  - ANXIETY [None]
  - ASTHENIA [None]
  - CONDITION AGGRAVATED [None]
  - DEPRESSION [None]
  - DISTURBANCE IN ATTENTION [None]
  - PRODUCT SUBSTITUTION ISSUE [None]
